FAERS Safety Report 5669447-X (Version None)
Quarter: 2008Q1

REPORT INFORMATION
  Report Type: 
  Country: None (occurrence: None)
  Receive Date: 20080317
  Receipt Date: 20080306
  Transmission Date: 20080703
  Serious: Yes (Other)
  Sender: FDA-Public Use
  Company Number: B0509016A

PATIENT
  Age: 2 Year
  Sex: Female
  Weight: 13.5 kg

DRUGS (5)
  1. FLIXOTIDE [Suspect]
     Indication: ASTHMA
     Route: 055
     Dates: start: 20071001
  2. AERIUS [Concomitant]
     Dosage: 2.5ML PER DAY
     Route: 048
     Dates: start: 20070101
  3. PRIMPERAN INJ [Concomitant]
     Indication: VOMITING
     Route: 048
     Dates: start: 20080208, end: 20080210
  4. IMODIUM [Concomitant]
     Route: 048
     Dates: start: 20080208, end: 20080210
  5. MOTILIUM [Concomitant]
     Indication: VOMITING
     Route: 048
     Dates: start: 20080206, end: 20080208

REACTIONS (3)
  - CYANOSIS [None]
  - LIP SWELLING [None]
  - OFF LABEL USE [None]
